FAERS Safety Report 24220833 (Version 1)
Quarter: 2024Q3

REPORT INFORMATION
  Report Type: Report from Study
  Country: EG (occurrence: EG)
  Receive Date: 20240818
  Receipt Date: 20240818
  Transmission Date: 20241017
  Serious: Yes (Other)
  Sender: ROCHE
  Company Number: EG-ROCHE-10000055786

PATIENT

DRUGS (2)
  1. ACTEMRA [Suspect]
     Active Substance: TOCILIZUMAB
     Indication: COVID-19
     Dosage: A FIXED DOSE WAS USED FOR?ALL PATIENTS, CONSISTING OF TWO INTRAVENOUS INJECTIONS?OF 400 MG EACH, 12
     Route: 042
  2. OSELTAMIVIR [Suspect]
     Active Substance: OSELTAMIVIR
     Indication: COVID-19
     Route: 065

REACTIONS (2)
  - Off label use [Unknown]
  - Acute kidney injury [Unknown]
